FAERS Safety Report 5867459-4 (Version None)
Quarter: 2008Q3

REPORT INFORMATION
  Report Type: 
  Country: None (occurrence: None)
  Receive Date: 20080902
  Receipt Date: 20080902
  Transmission Date: 20090109
  Serious: Yes (Hospitalization)
  Sender: FDA-Public Use
  Company Number: PHEH1996US07409

PATIENT
  Sex: Male
  Weight: 79.6 kg

DRUGS (13)
  1. SANDIMMUNE [Suspect]
     Route: 048
     Dates: start: 19951005, end: 19951129
  2. SANDIMMUNE [Suspect]
     Route: 048
     Dates: start: 19951130, end: 19951201
  3. SANDIMMUNE [Suspect]
     Route: 048
     Dates: start: 19951201
  4. HALCION [Concomitant]
     Dosage: UNSPECIFIED
     Route: 065
  5. PREDNISONE TAB [Concomitant]
     Dosage: UNSPECIFIED
     Route: 065
  6. BACTRIM [Concomitant]
     Dosage: UNSPECIFIED
     Route: 065
  7. MYCELEX [Concomitant]
     Dosage: UNSPECIFIED
     Route: 065
  8. ACYCLOVIR [Concomitant]
     Dosage: UNSPECIFIED
     Route: 065
  9. PEPCID [Concomitant]
     Dosage: UNSPECIFIED
     Route: 065
  10. LASIX [Concomitant]
     Dosage: UNSPECIFIED
     Route: 065
  11. MAGNESIUM SULFATE [Concomitant]
     Dosage: UNSPECIFIED
     Route: 065
  12. IMURAN [Concomitant]
     Dosage: UNSPECIFIED
     Route: 065
  13. TYLENOL (CAPLET) [Concomitant]
     Dosage: UNSPECIFIED
     Route: 065

REACTIONS (5)
  - ABDOMINAL PAIN [None]
  - HAEMATOMA [None]
  - HEPATIC ENZYME INCREASED [None]
  - LETHARGY [None]
  - NAUSEA [None]
